FAERS Safety Report 9981688 (Version 1)
Quarter: 2014Q1

REPORT INFORMATION
  Report Type: Report from Study
  Country: US (occurrence: US)
  Receive Date: 20140307
  Receipt Date: 20140307
  Transmission Date: 20141002
  Serious: Yes (Other)
  Sender: FDA-Public Use
  Company Number: US-ABBVIE-13P-163-1177895-00

PATIENT
  Age: 70 Year
  Sex: Female

DRUGS (4)
  1. HUMIRA [Suspect]
     Indication: RHEUMATOID ARTHRITIS
     Dates: start: 2011
  2. METOPROLOL [Concomitant]
     Indication: HYPERTENSION
  3. ATIVAN [Concomitant]
     Indication: ANXIETY
     Dosage: AT NIGHT
  4. PLAQUENIL [Concomitant]
     Indication: ARTHRITIS

REACTIONS (5)
  - Cholecystectomy [Unknown]
  - Muscular weakness [Not Recovered/Not Resolved]
  - Vitamin E decreased [Not Recovered/Not Resolved]
  - Vitamin B12 decreased [Not Recovered/Not Resolved]
  - Urinary tract infection [Not Recovered/Not Resolved]
